FAERS Safety Report 6255317-5 (Version None)
Quarter: 2009Q3

REPORT INFORMATION
  Report Type: 
  Country: None (occurrence: None)
  Receive Date: 20090702
  Receipt Date: 20090623
  Transmission Date: 20100115
  Serious: Yes (Other)
  Sender: FDA-Public Use
  Company Number: GB-PFIZER INC-2009230677

PATIENT
  Age: 47 Year

DRUGS (9)
  1. CHAMPIX [Suspect]
     Indication: SMOKING CESSATION THERAPY
     Dosage: 1 MG, 2X/DAY
     Route: 048
     Dates: start: 20090504, end: 20090602
  2. BENDROFLUMETHIAZIDE [Concomitant]
     Dosage: 2.5 MG, UNK
  3. CETIRIZINE [Concomitant]
     Dosage: 10 MG, UNK
  4. LEVOTHYROXINE [Concomitant]
     Dosage: 100 UG, UNK
  5. OMEPRAZOLE [Concomitant]
     Dosage: 20 MG, UNK
  6. OTRIVINE-ANTISTIN [Concomitant]
     Dosage: UNK, AS NEEDED
  7. PROPIVERINE [Concomitant]
     Dosage: 15 MG, UNK
  8. SALBUTAMOL [Concomitant]
     Dosage: 100 UG, UNK
     Route: 055
  9. SERETIDE [Concomitant]
     Dosage: 120 DF, UNK
     Route: 055

REACTIONS (3)
  - OEDEMA PERIPHERAL [None]
  - WEIGHT DECREASED [None]
  - WITHDRAWAL SYNDROME [None]
